FAERS Safety Report 11653509 (Version 3)
Quarter: 2015Q4

REPORT INFORMATION
  Report Type: Other
  Country: TW (occurrence: TW)
  Receive Date: 20151022
  Receipt Date: 20151110
  Transmission Date: 20160304
  Serious: Yes (Death, Hospitalization)
  Sender: FDA-Public Use
  Company Number: TW-UNITED THERAPEUTICS-UNT-2015-013198

PATIENT
  Age: 48 Year
  Sex: Male

DRUGS (1)
  1. REMODULIN [Suspect]
     Active Substance: TREPROSTINIL
     Indication: PULMONARY ARTERIAL HYPERTENSION
     Dosage: 0.014 ?G/KG, CONTINUING
     Route: 058
     Dates: start: 20150422, end: 20150531

REACTIONS (3)
  - Gastrointestinal inflammation [Not Recovered/Not Resolved]
  - Sepsis [Fatal]
  - Cardiac failure [Not Recovered/Not Resolved]

NARRATIVE: CASE EVENT DATE: 201505
